FAERS Safety Report 4428732-X (Version None)
Quarter: 2004Q3

REPORT INFORMATION
  Report Type: 
  Country: None (occurrence: None)
  Receive Date: 20040818
  Receipt Date: 20040309
  Transmission Date: 20050211
  Serious: Yes (Hospitalization)
  Sender: FDA-Public Use
  Company Number: US-BRISTOL-MYERS SQUIBB COMPANY-12528055

PATIENT
  Age: 34 Year
  Sex: Male

DRUGS (1)
  1. TEQUIN [Suspect]
     Indication: BRONCHITIS
     Route: 048
     Dates: start: 20031230, end: 20031230

REACTIONS (1)
  - ANGIONEUROTIC OEDEMA [None]
